FAERS Safety Report 5857902-9 (Version None)
Quarter: 2008Q3

REPORT INFORMATION
  Report Type: 
  Country: None (occurrence: None)
  Receive Date: 20080825
  Receipt Date: 20080825
  Transmission Date: 20090109
  Serious: Yes (Other)
  Sender: FDA-Public Use
  Company Number: None

PATIENT
  Sex: Male
  Weight: 108.8633 kg

DRUGS (2)
  1. EFFEXOR XR [Suspect]
     Indication: AFFECTIVE DISORDER
     Dosage: 150 MG PO AM DAILY PO
     Route: 048
     Dates: start: 20030101
  2. EFFEXOR XR [Suspect]
     Dosage: 75 MG PO PM DAILY PO

REACTIONS (4)
  - ELECTROENCEPHALOGRAM ABNORMAL [None]
  - NERVOUS SYSTEM DISORDER [None]
  - NUCLEAR MAGNETIC RESONANCE IMAGING BRAIN ABNORMAL [None]
  - PETIT MAL EPILEPSY [None]
